FAERS Safety Report 15813298 (Version 1)
Quarter: 2019Q1

REPORT INFORMATION
  Report Type: Spontaneous
  Country: US (occurrence: US)
  Receive Date: 20190111
  Receipt Date: 20190111
  Transmission Date: 20190417
  Serious: Yes (Hospitalization)
  Sender: FDA-Public Use
  Company Number: None

PATIENT
  Age: 82 Year
  Sex: Male

DRUGS (6)
  1. ZYTIGA [Suspect]
     Active Substance: ABIRATERONE ACETATE
     Indication: NEOPLASM MALIGNANT
     Route: 048
     Dates: start: 20180228
  2. AMLODIPINE, ISOSORB MONO, FOLIC ACID, CLONIDINE, VIT B1, BENAZEPRIL, [Concomitant]
  3. B1 NATURAL, GLUCOS/CHOND, FIBER-CAPS, LOTREL, ASPIRIN, VIT E [Concomitant]
  4. LOVENOX, COQ10, ZANTAC, CASODEX, AMITRIPTYLIN, METOPROL, VIT D3 [Concomitant]
  5. CENTRUM, FLOXAS, LASIX [Concomitant]
  6. LUPRON DEPOT [Suspect]
     Active Substance: LEUPROLIDE ACETATE
     Indication: NEOPLASM MALIGNANT
     Dosage: ?          OTHER FREQUENCY:EVERY 3 MONTHS;?
     Route: 030
     Dates: start: 20141120

REACTIONS (1)
  - Thrombosis [None]

NARRATIVE: CASE EVENT DATE: 20190109
